FAERS Safety Report 9832774 (Version 1)
Quarter: 2014Q1

REPORT INFORMATION
  Report Type: Spontaneous
  Country: US (occurrence: US)
  Receive Date: 20140121
  Receipt Date: 20140121
  Transmission Date: 20141002
  Serious: Yes (Other)
  Sender: FDA-Public Use
  Company Number: US-GLAXOSMITHKLINE-A1057128A

PATIENT
  Age: 46 Year
  Sex: Male

DRUGS (4)
  1. MEKINIST [Suspect]
     Indication: METASTATIC MALIGNANT MELANOMA
     Dosage: 2MG PER DAY
     Route: 048
     Dates: start: 201208, end: 20130115
  2. TAFINLAR [Suspect]
     Indication: METASTATIC MALIGNANT MELANOMA
     Dosage: 150MG TWICE PER DAY
     Route: 048
     Dates: start: 201208, end: 20130115
  3. ANTI-NAUSEA DRUGS [Concomitant]
  4. PAIN MEDICATION [Concomitant]

REACTIONS (1)
  - Malignant neoplasm progression [Not Recovered/Not Resolved]
